FAERS Safety Report 11942847 (Version 1)
Quarter: 2016Q1

REPORT INFORMATION
  Report Type: Spontaneous
  Country: US (occurrence: US)
  Receive Date: 20160125
  Receipt Date: 20160125
  Transmission Date: 20160526
  Serious: No
  Sender: FDA-Public Use
  Company Number: US-UNITED THERAPEUTICS-UNT-2015-012558

PATIENT
  Sex: Female

DRUGS (2)
  1. ORENITRAM [Suspect]
     Active Substance: TREPROSTINIL
     Indication: PULMONARY ARTERIAL HYPERTENSION
     Dosage: 0.5 MG, TID
     Route: 048
     Dates: start: 20150911
  2. ORENITRAM [Suspect]
     Active Substance: TREPROSTINIL
     Dosage: 0.25 MG, TID
     Route: 048

REACTIONS (5)
  - Exercise tolerance decreased [Unknown]
  - Pain in extremity [Recovered/Resolved]
  - Hypotension [Unknown]
  - Dizziness [Unknown]
  - Fatigue [Unknown]

NARRATIVE: CASE EVENT DATE: 20150925
